FAERS Safety Report 9640806 (Version 1)
Quarter: 2013Q4

REPORT INFORMATION
  Report Type: Report from Study
  Country: US (occurrence: US)
  Receive Date: 20131023
  Receipt Date: 20131023
  Transmission Date: 20140711
  Serious: No
  Sender: FDA-Public Use
  Company Number: US-ABBVIE-12P-163-1015118-00

PATIENT
  Age: 27 Year
  Sex: Female
  Weight: 54.48 kg

DRUGS (5)
  1. LUPRON DEPOT [Suspect]
     Indication: ENDOMETRIOSIS
     Route: 030
     Dates: start: 20121102
  2. NORETHINDRONE ACETATE [Concomitant]
     Indication: ADJUVANT THERAPY
     Dosage: 5 MG DAILY
     Dates: start: 201211
  3. MIRENA IUD [Concomitant]
     Indication: PRODUCT USED FOR UNKNOWN INDICATION
  4. LEXAPRO [Concomitant]
     Indication: DEPRESSION
  5. VICODIN [Concomitant]
     Indication: PAIN
     Dates: start: 201210

REACTIONS (18)
  - Somnolence [Not Recovered/Not Resolved]
  - Vaginal haemorrhage [Not Recovered/Not Resolved]
  - Mood swings [Not Recovered/Not Resolved]
  - Blepharospasm [Recovered/Resolved]
  - Chest pain [Not Recovered/Not Resolved]
  - Alopecia [Not Recovered/Not Resolved]
  - Acne [Not Recovered/Not Resolved]
  - Breast tenderness [Not Recovered/Not Resolved]
  - Vision blurred [Not Recovered/Not Resolved]
  - Memory impairment [Not Recovered/Not Resolved]
  - Migraine [Recovered/Resolved]
  - Nausea [Recovered/Resolved]
  - Vomiting [Recovered/Resolved]
  - Rash [Not Recovered/Not Resolved]
  - Menorrhagia [Recovered/Resolved]
  - Metrorrhagia [Not Recovered/Not Resolved]
  - Vulvovaginal dryness [Not Recovered/Not Resolved]
  - Muscle spasms [Not Recovered/Not Resolved]
